FAERS Safety Report 25584673 (Version 3)
Quarter: 2025Q3

REPORT INFORMATION
  Report Type: Spontaneous
  Country: US (occurrence: US)
  Receive Date: 20250721
  Receipt Date: 20250924
  Transmission Date: 20251021
  Serious: No
  Sender: SUNOVION
  Company Number: US-SMPA-2025SPA008481AA

PATIENT
  Age: 85 Year
  Sex: Male

DRUGS (3)
  1. ORGOVYX [Suspect]
     Active Substance: RELUGOLIX
     Indication: Prostate cancer
     Route: 048
  2. ORGOVYX [Suspect]
     Active Substance: RELUGOLIX
     Route: 048
  3. NUBEQA [Concomitant]
     Active Substance: DAROLUTAMIDE

REACTIONS (4)
  - Stomatitis [Unknown]
  - Pruritus [Unknown]
  - Hypoacusis [Unknown]
  - Back pain [Unknown]
